FAERS Safety Report 6916593-6 (Version None)
Quarter: 2010Q3

REPORT INFORMATION
  Report Type: 
  Country: None (occurrence: None)
  Receive Date: 20100809
  Receipt Date: 20100809
  Transmission Date: 20110219
  Serious: Yes (Other)
  Sender: FDA-Public Use
  Company Number: None

PATIENT
  Age: 54 Year
  Sex: Female
  Weight: 99.7913 kg

DRUGS (1)
  1. EVISTA [Suspect]
     Indication: OSTEOPOROSIS
     Dosage: ONE PILL PER DAY PO
     Route: 048
     Dates: start: 19950415

REACTIONS (2)
  - IMPAIRED WORK ABILITY [None]
  - TRANSIENT ISCHAEMIC ATTACK [None]
